FAERS Safety Report 22032851 (Version 1)
Quarter: 2023Q1

REPORT INFORMATION
  Report Type: Spontaneous
  Country: US (occurrence: US)
  Receive Date: 20230224
  Receipt Date: 20230224
  Transmission Date: 20230417
  Serious: Yes (Other)
  Sender: FDA-Public Use
  Company Number: US-SUN PHARMACEUTICAL INDUSTRIES LTD-2020R1-257015

PATIENT
  Age: 61 Year
  Sex: Male

DRUGS (1)
  1. METHOTREXATE [Suspect]
     Active Substance: METHOTREXATE
     Indication: Product used for unknown indication
     Route: 065

REACTIONS (5)
  - Toxicity to various agents [Unknown]
  - Myelosuppression [Recovered/Resolved]
  - Blister [Recovered/Resolved]
  - Swelling [Recovered/Resolved]
  - Pain [Recovered/Resolved]
